FAERS Safety Report 8130030 (Version 2)
Quarter: 2013Q1

REPORT INFORMATION
  Report Type: Spontaneous
  Country: JP (occurrence: None)
  Receive Date: 20110829
  Receipt Date: 20130213
  Transmission Date: 20140127
  Serious: Yes (Other)
  Sender: FDA-Public Use
  Company Number: 2010JP000070

PATIENT
  Age: 36 Year
  Sex: Female
  Weight: 46.7 kg

DRUGS (7)
  1. PROGRAF (TACROLIMUS) [Suspect]
     Indication: LUPUS NEPHRITIS
     Dosage: 3 MG, D, ORAL
     Route: 048
     Dates: start: 20070608
  2. PREDNISOLONE [Suspect]
     Indication: LUPUS NEPHRITIS
     Dosage: 20 MG, D, ORAL
     Route: 048
  3. GASTER [Concomitant]
  4. ASPIRIN [Concomitant]
  5. BONALON (ALENDRONATE SODIUM) [Concomitant]
  6. ROCEPHIN (CEFTRIAXONE SODIUM) [Concomitant]
  7. LOXONIN (LOXOPROFEN SODIUM) [Concomitant]

REACTIONS (11)
  - Metrorrhagia [None]
  - Ovarian failure [None]
  - Sinusitis [None]
  - Pain [None]
  - Nasopharyngitis [None]
  - Community acquired infection [None]
  - Bacterial infection [None]
  - Abdominal pain upper [None]
  - Arthralgia [None]
  - Menstruation irregular [None]
  - Back pain [None]
